FAERS Safety Report 4313639-9 (Version None)
Quarter: 2004Q1

REPORT INFORMATION
  Report Type: 
  Country: None (occurrence: None)
  Receive Date: 20040305
  Receipt Date: 20040224
  Transmission Date: 20041129
  Serious: Yes (Hospitalization)
  Sender: FDA-Public Use
  Company Number: US-JNJFOC-20040205951

PATIENT
  Age: 49 Year
  Sex: Female

DRUGS (16)
  1. INFLIXIMAB (INFLIXIMAB, RECOMBINANT) LYOPHILIZED POWDER [Suspect]
     Indication: RHEUMATOID ARTHRITIS
     Dosage: INTRAVENOUS
     Route: 042
     Dates: start: 20020220, end: 20030724
  2. METHOTREXATE [Concomitant]
  3. FOLIC ACID [Concomitant]
  4. LIPITOR [Concomitant]
  5. OXYCONTIN [Concomitant]
  6. NEXIUM [Concomitant]
  7. ATENOLOL [Concomitant]
  8. PREDNISONE [Concomitant]
  9. ACTONEL [Concomitant]
  10. SYNTHROID [Concomitant]
  11. MULTIVITAMIN (MULTIVITAMINS) [Concomitant]
  12. TORSEMIDE (TORASEMIDE) [Concomitant]
  13. KLOR-CON [Concomitant]
  14. ACTOS [Concomitant]
  15. DEMADEX [Concomitant]
  16. INSULIN [Concomitant]

REACTIONS (1)
  - UROSEPSIS [None]
